FAERS Safety Report 6555566-2 (Version None)
Quarter: 2010Q1

REPORT INFORMATION
  Report Type: 
  Country: None (occurrence: None)
  Receive Date: 20100128
  Receipt Date: 20100115
  Transmission Date: 20100710
  Serious: Yes (Hospitalization)
  Sender: FDA-Public Use
  Company Number: NL-MEDIMMUNE-MEDI-0010299

PATIENT
  Sex: Male
  Weight: 5.6 kg

DRUGS (1)
  1. SYNAGIS [Suspect]
     Route: 030
     Dates: start: 20090920, end: 20090920

REACTIONS (5)
  - DYSPNOEA [None]
  - HYPOPHAGIA [None]
  - NASOPHARYNGITIS [None]
  - RESPIRATORY SYNCYTIAL VIRUS INFECTION [None]
  - RHINOVIRUS INFECTION [None]
